FAERS Safety Report 10928494 (Version 1)
Quarter: 2015Q1

REPORT INFORMATION
  Report Type: Spontaneous
  Country: BR (occurrence: BR)
  Receive Date: 20150319
  Receipt Date: 20150319
  Transmission Date: 20150721
  Serious: Yes (Hospitalization)
  Sender: FDA-Public Use
  Company Number: BR-EMD SERONO-8016454

PATIENT
  Age: 32 Year
  Sex: Female

DRUGS (1)
  1. GONAL-F [Suspect]
     Active Substance: FOLLITROPIN
     Indication: ASSISTED FERTILISATION
     Route: 058
     Dates: start: 20150221, end: 20150228

REACTIONS (3)
  - Haemorrhagic ovarian cyst [Unknown]
  - Ovarian hyperstimulation syndrome [Recovered/Resolved with Sequelae]
  - Cyst rupture [Unknown]

NARRATIVE: CASE EVENT DATE: 20150309
